FAERS Safety Report 8052953-0 (Version None)
Quarter: 2012Q1

REPORT INFORMATION
  Report Type: 
  Country: None (occurrence: None)
  Receive Date: 20120118
  Receipt Date: 20120111
  Transmission Date: 20120608
  Serious: Yes (Life-Threatening, Hospitalization)
  Sender: FDA-Public Use
  Company Number: US-BAYER-2011-081785

PATIENT
  Age: 48 Year
  Sex: Female

DRUGS (9)
  1. YASMIN [Suspect]
     Dosage: UNK
     Dates: start: 20030101, end: 20040101
  2. ZOLOFT [Concomitant]
     Dosage: 100 MG, QD
  3. NAPROXEN [Concomitant]
     Dosage: 500 MG, QD
  4. FLEXERIL [Concomitant]
     Dosage: 10 MG, QD
  5. NEXIUM [Concomitant]
     Dosage: 40 MG, QD
  6. IMITREX [Concomitant]
     Dosage: UNK
     Dates: start: 19900101, end: 20050101
  7. ZANAFLEX [Concomitant]
     Dosage: 4 MG, QD
  8. ASPIRIN [Concomitant]
     Dosage: 81 MG, QD
  9. VITAMIN [Concomitant]
     Dosage: ONE DAILY

REACTIONS (9)
  - ANXIETY [None]
  - PAIN [None]
  - FEAR [None]
  - ANHEDONIA [None]
  - DEEP VEIN THROMBOSIS [None]
  - PULMONARY EMBOLISM [None]
  - INJURY [None]
  - WHEEZING [None]
  - PAIN IN EXTREMITY [None]
